FAERS Safety Report 5021050-0 (Version None)
Quarter: 2006Q2

REPORT INFORMATION
  Report Type: 
  Country: None (occurrence: None)
  Receive Date: 20060414
  Receipt Date: 20060227
  Transmission Date: 20061013
  Serious: Yes (Other)
  Sender: FDA-Public Use
  Company Number: US-JNJFOC-20060300109

PATIENT

DRUGS (2)
  1. ULTRAM [Suspect]
     Dosage: ORAL
     Route: 048
  2. SSRI (SSRI) [Concomitant]

REACTIONS (1)
  - CONVULSION [None]
